FAERS Safety Report 11614596 (Version 1)
Quarter: 2015Q4

REPORT INFORMATION
  Report Type: Spontaneous
  Country: GB (occurrence: GB)
  Receive Date: 20151009
  Receipt Date: 20151009
  Transmission Date: 20160304
  Serious: Yes (Other)
  Sender: FDA-Public Use
  Company Number: GB-AUROBINDO-AUR-APL-2015-08954

PATIENT
  Age: 22 Year
  Sex: Female
  Weight: 50.8 kg

DRUGS (2)
  1. CEFALEXIN 500MG TABLETS BP [Suspect]
     Active Substance: CEPHALEXIN
     Indication: MASTITIS
     Dosage: 500 MG, 3 TIMES A DAY
     Route: 048
     Dates: start: 20150918, end: 20150925
  2. CLARITHROMYCIN. [Concomitant]
     Active Substance: CLARITHROMYCIN
     Indication: PRODUCT USED FOR UNKNOWN INDICATION
     Route: 065

REACTIONS (7)
  - Hypopnoea [Recovered/Resolved]
  - Abdominal pain [Recovered/Resolved]
  - Chest discomfort [Recovered/Resolved]
  - Dyspnoea [Recovered/Resolved]
  - Nausea [Recovered/Resolved]
  - Tinnitus [Recovering/Resolving]
  - Dizziness [Recovering/Resolving]

NARRATIVE: CASE EVENT DATE: 20150918
